APPROVED DRUG PRODUCT: SODIUM BICARBONATE
Active Ingredient: SODIUM BICARBONATE
Strength: 2.5MEQ/5ML (0.5MEQ/ML)
Dosage Form/Route: SOLUTION;INTRAVENOUS
Application: A202981 | Product #001 | TE Code: AP
Applicant: HOSPIRA INC
Approved: Mar 4, 2016 | RLD: No | RS: Yes | Type: RX